FAERS Safety Report 26118336 (Version 1)
Quarter: 2025Q4

REPORT INFORMATION
  Report Type: Spontaneous
  Country: CA (occurrence: CA)
  Receive Date: 20251203
  Receipt Date: 20251203
  Transmission Date: 20260117
  Serious: Yes (Hospitalization, Other)
  Sender: PFIZER
  Company Number: CA-PFIZER INC-202500123505

PATIENT
  Age: 42 Year
  Sex: Female

DRUGS (60)
  1. RUXIENCE [Suspect]
     Active Substance: RITUXIMAB-PVVR
     Indication: Granulomatosis with polyangiitis
     Dosage: 1000 MG (DAY 1 AND DAY 15), (1ST TREATMENT) 1,000MG IN SODIUM CHLORIDE 0.9% 630 ML IVPB
     Route: 042
     Dates: start: 20250616
  2. RUXIENCE [Suspect]
     Active Substance: RITUXIMAB-PVVR
     Dosage: 1000 MG (DAY 1 AND DAY 15)
     Route: 042
     Dates: start: 20250630, end: 20250630
  3. AVACOPAN [Concomitant]
     Active Substance: AVACOPAN
     Dosage: 30 MG, 2X/DAY (BID)
  4. AVELOX [Concomitant]
     Active Substance: MOXIFLOXACIN HYDROCHLORIDE
     Dosage: 400 MG (400MG/250 ML IVPB PREMIX 400MG)
     Route: 042
     Dates: start: 20250612
  5. BENADRYL [Concomitant]
     Active Substance: DIPHENHYDRAMINE HYDROCHLORIDE
     Dosage: 50 MG,IN PREPARATION FOR RITUXIMAB
     Dates: start: 20250616
  6. CICLESONIDE [Concomitant]
     Active Substance: CICLESONIDE
     Dosage: 50 UG
     Route: 045
     Dates: start: 202505
  7. CALCIUM CARBONATE [Concomitant]
     Active Substance: CALCIUM CARBONATE
     Dosage: 500 MG,OF ELEMENTAL CALCIUM
     Dates: start: 20250614
  8. CALCIUM CARBONATE [Concomitant]
     Active Substance: CALCIUM CARBONATE
     Dosage: 500 MG,OF ELEMENTAL CALCIUM
     Dates: start: 20250615
  9. CALCIUM CARBONATE [Concomitant]
     Active Substance: CALCIUM CARBONATE
     Dosage: 500 MG,OF ELEMENTAL CALCIUM
     Dates: start: 20250616
  10. CALCIUM [Concomitant]
     Active Substance: CALCIUM
     Dosage: 500 MG, TABLET OF ELEMENTAL CALCIUM
     Dates: start: 20250612
  11. CALCIUM [Concomitant]
     Active Substance: CALCIUM
     Dosage: 500 MG, OF ELEMENTAL CALCIUM
     Dates: start: 20250613
  12. CALCIUM [Concomitant]
     Active Substance: CALCIUM
     Dosage: 500 MG, OF ELEMENTAL CALCIUM
     Dates: start: 20250616
  13. CALCIUM [Concomitant]
     Active Substance: CALCIUM
     Dosage: 500 MG, OF ELEMENTAL CALCIUM
     Dates: start: 20250617
  14. CALCIUM [Concomitant]
     Active Substance: CALCIUM
     Dosage: 500 MG
     Dates: start: 20250618
  15. CALCIUM [Concomitant]
     Active Substance: CALCIUM
     Dosage: 500 MG
     Dates: start: 20250619
  16. DAPAGLIFLOZIN [Concomitant]
     Active Substance: DAPAGLIFLOZIN
     Indication: Nephropathy
     Dosage: UNK
  17. DAPAGLIFLOZIN [Concomitant]
     Active Substance: DAPAGLIFLOZIN
     Dosage: 10 MG, DAILY
  18. FENTANYL [Concomitant]
     Active Substance: FENTANYL
     Indication: Bronchoscopy
     Dosage: UNK
     Dates: start: 20250613
  19. IMOVANE [Concomitant]
     Active Substance: ZOPICLONE
     Indication: Insomnia
     Dosage: 3.75 MG
     Dates: start: 20250613
  20. IMOVANE [Concomitant]
     Active Substance: ZOPICLONE
     Dosage: 3.75 MG
     Dates: start: 20250614
  21. IMOVANE [Concomitant]
     Active Substance: ZOPICLONE
     Dosage: 3.75 MG
     Dates: start: 20250615
  22. IMOVANE [Concomitant]
     Active Substance: ZOPICLONE
     Dosage: 3.75 MG
     Dates: start: 20250616
  23. IMOVANE [Concomitant]
     Active Substance: ZOPICLONE
     Dosage: 3.75 MG
     Dates: start: 20250618
  24. IMOVANE [Concomitant]
     Active Substance: ZOPICLONE
     Dosage: 3.75 MG
     Dates: start: 20250619
  25. GRAVOL [Concomitant]
     Active Substance: DIMENHYDRINATE
     Indication: Insomnia
     Dosage: 12.5 MG
     Dates: start: 20250619
  26. ISOVUE [Concomitant]
     Active Substance: IOPAMIDOL
     Dosage: 60 ML, 370MG IODINE/ML (76%) INJECTION 60ML
     Dates: start: 20250612
  27. LACTATED RINGERS SOLUTION [Concomitant]
     Active Substance: CALCIUM CHLORIDE\POTASSIUM CHLORIDE\SODIUM CHLORIDE\SODIUM LACTATE
     Dosage: UNK, INFUSION
     Dates: start: 20250612
  28. LACTATED RINGERS SOLUTION [Concomitant]
     Active Substance: CALCIUM CHLORIDE\POTASSIUM CHLORIDE\SODIUM CHLORIDE\SODIUM LACTATE
     Dosage: UNK, INFUSION
     Dates: start: 20250613
  29. LACTATED RINGERS SOLUTION [Concomitant]
     Active Substance: CALCIUM CHLORIDE\POTASSIUM CHLORIDE\SODIUM CHLORIDE\SODIUM LACTATE
     Dosage: UNK, INFUSION, NO IDEA
     Dates: start: 20250614
  30. MEPRON [Concomitant]
     Active Substance: ATOVAQUONE
     Dosage: 1500 MG
     Dates: start: 20250618
  31. MEPRON [Concomitant]
     Active Substance: ATOVAQUONE
     Dosage: 1500 MG
     Dates: start: 20250619
  32. MEPRON [Concomitant]
     Active Substance: ATOVAQUONE
     Dosage: 1.5 G, DAILY
  33. PREDNISONE [Concomitant]
     Active Substance: PREDNISONE
     Dosage: 30 MG
     Dates: start: 20250526
  34. PREDNISONE [Concomitant]
     Active Substance: PREDNISONE
     Dosage: 50 MG
     Dates: start: 20250618
  35. PREDNISONE [Concomitant]
     Active Substance: PREDNISONE
     Dosage: 5 MG, DAILY
  36. SODIUM CHLORIDE [Concomitant]
     Active Substance: SODIUM CHLORIDE
     Dosage: 1000 ML, 0.09%
     Route: 040
     Dates: start: 20250612
  37. SOLU-MEDROL [Concomitant]
     Active Substance: METHYLPREDNISOLONE SODIUM SUCCINATE
     Indication: Haemoptysis
     Dosage: UNK,125MG IN SODIUM CHLORIDE 0.9% 50ML IVPB
     Route: 042
     Dates: start: 20250612
  38. SOLU-MEDROL [Concomitant]
     Active Substance: METHYLPREDNISOLONE SODIUM SUCCINATE
     Dosage: 1000 MG
     Dates: start: 20250613
  39. SOLU-MEDROL [Concomitant]
     Active Substance: METHYLPREDNISOLONE SODIUM SUCCINATE
     Dosage: 1000 MG, INJECTION, PF
     Dates: start: 20250614
  40. SOLU-MEDROL [Concomitant]
     Active Substance: METHYLPREDNISOLONE SODIUM SUCCINATE
     Dosage: 1000 MG, PF
     Dates: start: 20250615
  41. SOLU-MEDROL [Concomitant]
     Active Substance: METHYLPREDNISOLONE SODIUM SUCCINATE
     Dosage: 500 MG, 500MG IN SODIUM CHLORIDE - IN REACTION TO COUGHING UP BLOOD ON WEDNESDAY
     Dates: start: 20250618
  42. SOLU-MEDROL [Concomitant]
     Active Substance: METHYLPREDNISOLONE SODIUM SUCCINATE
     Dosage: 500 MG
     Route: 042
     Dates: start: 20250619
  43. PANTOPRAZOLE MAGNESIUM [Concomitant]
     Active Substance: PANTOPRAZOLE MAGNESIUM
     Dosage: 40 MG
     Dates: start: 20250612
  44. PANTOPRAZOLE MAGNESIUM [Concomitant]
     Active Substance: PANTOPRAZOLE MAGNESIUM
     Dosage: 40 MG
     Dates: start: 20250614
  45. PANTOPRAZOLE MAGNESIUM [Concomitant]
     Active Substance: PANTOPRAZOLE MAGNESIUM
     Dosage: 40 MG
     Dates: start: 20250615
  46. PANTOPRAZOLE MAGNESIUM [Concomitant]
     Active Substance: PANTOPRAZOLE MAGNESIUM
     Dosage: 40 MG
     Dates: start: 20250616
  47. PANTOPRAZOLE MAGNESIUM [Concomitant]
     Active Substance: PANTOPRAZOLE MAGNESIUM
     Dosage: 40 MG
     Dates: start: 20250618
  48. PANTOPRAZOLE MAGNESIUM [Concomitant]
     Active Substance: PANTOPRAZOLE MAGNESIUM
     Dosage: 40 MG
     Dates: start: 20250619
  49. TYLENOL [Concomitant]
     Active Substance: ACETAMINOPHEN
     Dosage: 650 MG,IN PREPARATION OF RITUXIMAB
     Dates: start: 20250616
  50. TELMISARTAN [Concomitant]
     Active Substance: TELMISARTAN
     Indication: Hypertension
     Dosage: UNK
  51. VITAMIN D3 [Concomitant]
     Active Substance: CHOLECALCIFEROL
     Dosage: 1000 IU
     Dates: start: 20250612
  52. VITAMIN D3 [Concomitant]
     Active Substance: CHOLECALCIFEROL
     Dosage: 1000 IU
     Dates: start: 20250614
  53. VITAMIN D3 [Concomitant]
     Active Substance: CHOLECALCIFEROL
     Dosage: 1000 IU
     Dates: start: 20250615
  54. VITAMIN D3 [Concomitant]
     Active Substance: CHOLECALCIFEROL
     Dosage: 1000 IU
     Dates: start: 20250616
  55. VITAMIN D3 [Concomitant]
     Active Substance: CHOLECALCIFEROL
     Dosage: 1000 IU
     Dates: start: 20250617
  56. VITAMIN D3 [Concomitant]
     Active Substance: CHOLECALCIFEROL
     Dosage: 1000 IU
     Dates: start: 20250618
  57. VITAMIN D3 [Concomitant]
     Active Substance: CHOLECALCIFEROL
     Dosage: 1000 IU
     Dates: start: 20250619
  58. VERSED [Concomitant]
     Active Substance: MIDAZOLAM HYDROCHLORIDE
     Indication: Bronchoscopy
     Dosage: 1 MG/ML, X3
     Dates: start: 20250613
  59. XYLOCAINE [Concomitant]
     Active Substance: LIDOCAINE HYDROCHLORIDE
     Indication: Bronchoscopy
     Dosage: UNK,ENDOTRACHEAL SPRAY
     Dates: start: 20250613
  60. ZOPICLONE [Concomitant]
     Active Substance: ZOPICLONE
     Indication: Insomnia
     Dosage: 3.75 MG
     Dates: start: 20250617

REACTIONS (4)
  - Pulmonary alveolar haemorrhage [Recovering/Resolving]
  - Abdominal pain [Unknown]
  - Skin disorder [Unknown]
  - Off label use [Unknown]

NARRATIVE: CASE EVENT DATE: 20250101
